FAERS Safety Report 26068995 (Version 1)
Quarter: 2025Q4

REPORT INFORMATION
  Report Type: Report from Study
  Country: EU (occurrence: None)
  Receive Date: 20251120
  Receipt Date: 20251120
  Transmission Date: 20260118
  Serious: Yes (Hospitalization)
  Sender: UCB
  Company Number: EU-UCBSA-2025072281

PATIENT
  Age: 73 Year

DRUGS (1)
  1. ROZANOLIXIZUMAB [Suspect]
     Active Substance: ROZANOLIXIZUMAB
     Indication: Product used for unknown indication
     Dosage: 280 MILLIGRAM, WEEKLY (QW)

REACTIONS (1)
  - Dyspnoea [Not Recovered/Not Resolved]
